FAERS Safety Report 7570596-X (Version None)
Quarter: 2011Q2

REPORT INFORMATION
  Report Type: 
  Country: None (occurrence: None)
  Receive Date: 20110624
  Receipt Date: 20110419
  Transmission Date: 20111010
  Serious: No
  Sender: FDA-Public Use
  Company Number: US-ALLERGAN-1105030US

PATIENT
  Age: 38 Year
  Sex: Female

DRUGS (3)
  1. CLARITIN ALLERGIC [Concomitant]
     Indication: SEASONAL ALLERGY
     Dosage: UNK
     Route: 048
  2. VISINE ALLERGY                     /00419602/ [Concomitant]
     Indication: SEASONAL ALLERGY
     Dosage: UNK
     Route: 047
  3. LATISSE [Suspect]
     Indication: MADAROSIS
     Dosage: 1 GTT, QHS
     Route: 061
     Dates: start: 20110410

REACTIONS (1)
  - SCLERAL HYPERAEMIA [None]
